FAERS Safety Report 9310074 (Version 2)
Quarter: 2013Q3

REPORT INFORMATION
  Report Type: Spontaneous
  Country: US (occurrence: US)
  Receive Date: 20130527
  Receipt Date: 20130918
  Transmission Date: 20140515
  Serious: No
  Sender: FDA-Public Use
  Company Number: US-BIOGENIDEC-2013BI046156

PATIENT
  Sex: Male

DRUGS (1)
  1. TYSABRI [Suspect]
     Indication: MULTIPLE SCLEROSIS
     Route: 042
     Dates: start: 20101129, end: 20121025

REACTIONS (4)
  - Mobility decreased [Unknown]
  - Drug effect decreased [Recovered/Resolved with Sequelae]
  - Asthenia [Unknown]
  - Arthralgia [Recovered/Resolved]
